FAERS Safety Report 11963459 (Version 1)
Quarter: 2016Q1

REPORT INFORMATION
  Report Type: Spontaneous
  Country: US (occurrence: None)
  Receive Date: 20160121
  Receipt Date: 20160121
  Transmission Date: 20160526
  Serious: No
  Sender: FDA-Public Use
  Company Number: None

PATIENT
  Age: 11 Year
  Sex: Male
  Weight: 52.62 kg

DRUGS (2)
  1. CHILDRENS VITAMIN [Concomitant]
  2. FLONASE [Suspect]
     Active Substance: FLUTICASONE PROPIONATE
     Indication: NASAL CONGESTION
     Route: 055

REACTIONS (3)
  - Rash [None]
  - Dysphagia [None]
  - Eyelid oedema [None]

NARRATIVE: CASE EVENT DATE: 20160119
